FAERS Safety Report 11113660 (Version 1)
Quarter: 2015Q2

REPORT INFORMATION
  Report Type: Report from Study
  Country: PL (occurrence: PL)
  Receive Date: 20150514
  Receipt Date: 20150514
  Transmission Date: 20150821
  Serious: Yes (Death, Hospitalization)
  Sender: FDA-Public Use
  Company Number: PL-EISAI MEDICAL RESEARCH-E7080-01193-CLI-PL

PATIENT
  Age: 28 Year
  Sex: Male
  Weight: 78 kg

DRUGS (17)
  1. LENVATINIB [Suspect]
     Active Substance: LENVATINIB
     Indication: MEDULLARY THYROID CANCER
     Route: 048
     Dates: start: 20100722, end: 20140821
  2. EUTHYROX [Concomitant]
     Active Substance: LEVOTHYROXINE SODIUM
     Indication: HYPOTHYROIDISM
     Dosage: 150 MICROGRAM DAILY
     Route: 048
  3. ATROVENT [Concomitant]
     Active Substance: IPRATROPIUM BROMIDE
  4. CALCIUM CARBONATE. [Concomitant]
     Active Substance: CALCIUM CARBONATE
  5. XARTAN 50 [Concomitant]
     Indication: HYPERTENSION
     Route: 048
  6. LENVATINIB [Suspect]
     Active Substance: LENVATINIB
     Route: 048
     Dates: start: 20140912, end: 20141017
  7. KALIPOZ [Concomitant]
     Active Substance: POTASSIUM CHLORIDE
     Indication: PROPHYLAXIS
     Route: 048
  8. METOPROLOL TARTRATE. [Concomitant]
     Active Substance: METOPROLOL TARTRATE
  9. CALCIUM CARBONATE. [Concomitant]
     Active Substance: CALCIUM CARBONATE
     Indication: HYPOPARATHYROIDISM
     Dosage: 1000MG+500MG
     Route: 048
  10. METOPROLOL TARTRATE. [Concomitant]
     Active Substance: METOPROLOL TARTRATE
     Indication: PROPHYLAXIS
     Route: 048
  11. POTASSIUM CHLORIDE. [Concomitant]
     Active Substance: POTASSIUM CHLORIDE
  12. LOPERAMIDE [Concomitant]
     Active Substance: LOPERAMIDE
  13. ESSENTIALE FORTE [Concomitant]
     Indication: SUPPORTIVE CARE
     Dosage: 1 TABL
     Route: 048
  14. ESOMEPRAZOLE [Concomitant]
     Active Substance: ESOMEPRAZOLE
  15. METOPROLOL [Concomitant]
     Active Substance: METOPROLOL
  16. ALPHACALCIDOL [Concomitant]
     Active Substance: ALFACALCIDOL
     Indication: HYPOPARATHYROIDISM
     Route: 048
  17. ELTROXIN [Concomitant]
     Active Substance: LEVOTHYROXINE

REACTIONS (8)
  - Respiratory failure [Fatal]
  - Sepsis [Recovering/Resolving]
  - Bronchitis [Recovered/Resolved]
  - Pancreatic disorder [Recovering/Resolving]
  - Metastases to central nervous system [Recovering/Resolving]
  - Pancreatitis acute [Recovered/Resolved]
  - Arterial rupture [Recovered/Resolved]
  - Pneumonia staphylococcal [Recovered/Resolved]

NARRATIVE: CASE EVENT DATE: 20110127
